FAERS Safety Report 6026981-0 (Version None)
Quarter: 2009Q1

REPORT INFORMATION
  Report Type: 
  Country: None (occurrence: None)
  Receive Date: 20090105
  Receipt Date: 20081218
  Transmission Date: 20090719
  Serious: Yes (Hospitalization)
  Sender: FDA-Public Use
  Company Number: JP-PFIZER INC-2008092763

PATIENT

DRUGS (10)
  1. ALDACTONE [Suspect]
     Indication: THROMBOSIS PROPHYLAXIS
     Route: 048
     Dates: start: 20080904, end: 20081026
  2. ZITHROMAX [Suspect]
     Indication: PNEUMONIA
     Route: 048
     Dates: start: 20080904, end: 20080906
  3. WARFARIN SODIUM [Suspect]
     Indication: CARDIAC FAILURE
     Route: 048
     Dates: start: 20080909, end: 20081026
  4. ARTIST [Suspect]
     Indication: CARDIAC FAILURE
     Route: 048
     Dates: start: 20080911
  5. RENIVACE [Suspect]
     Indication: CARDIAC FAILURE
     Route: 048
     Dates: start: 20080909, end: 20081012
  6. AMPICILLIN SODIUM/SULBACTAM SODIUM [Suspect]
     Indication: PNEUMONIA
     Dosage: 1.5G; 4.5G
     Dates: start: 20080904, end: 20080915
  7. LASIX [Suspect]
     Route: 042
     Dates: start: 20080904, end: 20080909
  8. RABEPRAZOLE SODIUM [Concomitant]
     Route: 048
     Dates: start: 20080904, end: 20081008
  9. FLUITRAN [Concomitant]
     Dates: end: 20080101
  10. HEPARIN [Concomitant]
     Indication: CARDIAC FAILURE
     Dosage: DAILY
     Route: 042
     Dates: start: 20080909, end: 20080912

REACTIONS (1)
  - THROMBOCYTOPENIA [None]
